FAERS Safety Report 10069004 (Version 2)
Quarter: 2014Q2

REPORT INFORMATION
  Report Type: Spontaneous
  Country: US (occurrence: US)
  Receive Date: 20140409
  Receipt Date: 20140515
  Transmission Date: 20141212
  Serious: No
  Sender: FDA-Public Use
  Company Number: US-GILEAD-2014-0098826

PATIENT
  Sex: Male

DRUGS (5)
  1. SOVALDI [Suspect]
     Dosage: 400 MG, UNK
     Route: 048
  2. RIBAVIRIN [Concomitant]
     Dosage: 600 MG, BID
  3. LAMICTAL [Concomitant]
     Dosage: 25 MG, QID
  4. OSYMIA [Concomitant]
     Dosage: 11.25 MG - 69 MG, QD
  5. SOVALDI [Suspect]
     Indication: HEPATITIS C
     Dosage: 400 MG, QD
     Route: 048

REACTIONS (1)
  - Overdose [Recovered/Resolved]
